FAERS Safety Report 4633841-6 (Version None)
Quarter: 2005Q2

REPORT INFORMATION
  Report Type: 
  Country: None (occurrence: None)
  Receive Date: 20050325
  Receipt Date: 20041209
  Transmission Date: 20051028
  Serious: No
  Sender: FDA-Public Use
  Company Number: USA041285738

PATIENT
  Age: 67 Year
  Sex: Female

DRUGS (1)
  1. FORTEO [Suspect]
     Indication: OSTEOPOROSIS
     Dates: start: 20040720

REACTIONS (9)
  - ABNORMAL BEHAVIOUR [None]
  - FORMICATION [None]
  - MUSCLE SPASMS [None]
  - NIGHTMARE [None]
  - PAIN [None]
  - PAIN IN EXTREMITY [None]
  - RESTLESSNESS [None]
  - SENSORY DISTURBANCE [None]
  - SLEEP DISORDER [None]
